FAERS Safety Report 9034578 (Version 4)
Quarter: 2013Q1

REPORT INFORMATION
  Report Type: Spontaneous
  Country: IT (occurrence: None)
  Receive Date: 20130111
  Receipt Date: 20130213
  Transmission Date: 20140127
  Serious: Yes (Hospitalization)
  Sender: FDA-Public Use
  Company Number: AUR-APL-2013-00074

PATIENT
  Age: 75 Year
  Sex: Female

DRUGS (5)
  1. METFORMIN [Suspect]
     Indication: TYPE 2 DIABETES MELLITUS
     Route: 048
     Dates: start: 20080101, end: 20120619
  2. NEBILOX [Concomitant]
  3. BLOPRESID [Concomitant]
  4. TAVOR [Concomitant]
  5. LANSOPRAZOLE [Concomitant]

REACTIONS (2)
  - Hypoglycaemic coma [None]
  - Blood ethanol increased [None]
